FAERS Safety Report 10224861 (Version 2)
Quarter: 2014Q2

REPORT INFORMATION
  Report Type: Other
  Country: US (occurrence: US)
  Receive Date: 20140609
  Receipt Date: 20140609
  Transmission Date: 20141212
  Serious: Yes (Hospitalization, Other)
  Sender: FDA-Public Use
  Company Number: US-GSKPPD-2014GSK000129

PATIENT
  Age: 60 Year
  Sex: Male
  Weight: 127 kg

DRUGS (4)
  1. AVANDIA [Suspect]
     Indication: DIABETES MELLITUS
     Route: 048
     Dates: start: 20071210, end: 20080626
  2. ATENOLOL [Concomitant]
     Route: 048
  3. HYDROCHLOROTHIAZIDE [Concomitant]
     Route: 048
  4. NITROSTAT [Concomitant]
     Route: 060

REACTIONS (2)
  - Coronary artery disease [None]
  - Ventricular fibrillation [Recovered/Resolved]
